FAERS Safety Report 7904946-9 (Version None)
Quarter: 2011Q4

REPORT INFORMATION
  Report Type: 
  Country: None (occurrence: None)
  Receive Date: 20111109
  Receipt Date: 20111102
  Transmission Date: 20120403
  Serious: Yes (Other)
  Sender: FDA-Public Use
  Company Number: PHHY2011NL96862

PATIENT
  Age: 49 Year
  Sex: Male

DRUGS (1)
  1. AFINITOR [Suspect]
     Indication: METASTATIC RENAL CELL CARCINOMA
     Dates: start: 20110316

REACTIONS (2)
  - FATIGUE [None]
  - GENERAL PHYSICAL HEALTH DETERIORATION [None]
